FAERS Safety Report 13265522 (Version 1)
Quarter: 2017Q1

REPORT INFORMATION
  Report Type: Spontaneous
  Country: US (occurrence: US)
  Receive Date: 20170223
  Receipt Date: 20170223
  Transmission Date: 20170428
  Serious: No
  Sender: FDA-Public Use
  Company Number: US-BAYER-2017-036375

PATIENT
  Sex: Female

DRUGS (2)
  1. ALEVE [Suspect]
     Active Substance: NAPROXEN SODIUM
  2. PALBOCICLIB [Concomitant]
     Active Substance: PALBOCICLIB
     Indication: METASTATIC NEOPLASM
     Dosage: 1 DF, QD
     Route: 048

REACTIONS (1)
  - Drug hypersensitivity [None]
